FAERS Safety Report 16771271 (Version 1)
Quarter: 2019Q3

REPORT INFORMATION
  Report Type: Spontaneous
  Country: US (occurrence: US)
  Receive Date: 20190715
  Receipt Date: 20190715
  Transmission Date: 20191005
  Serious: Yes (Hospitalization)
  Sender: FDA-Public Use
  Company Number: None

PATIENT
  Age: 70 Year
  Sex: Female

DRUGS (11)
  1. LOSARTAN POT [Concomitant]
     Active Substance: LOSARTAN POTASSIUM
  2. ESTRADIOL CRE [Concomitant]
  3. SIMVASTATIN. [Concomitant]
     Active Substance: SIMVASTATIN
  4. ESCITALOPRAM [Concomitant]
     Active Substance: ESCITALOPRAM OXALATE
  5. RANITIDINE. [Concomitant]
     Active Substance: RANITIDINE
  6. ASPIRIN LOW TAB [Concomitant]
  7. VENLAFAXINE [Concomitant]
     Active Substance: VENLAFAXINE HYDROCHLORIDE
  8. ESBRIET [Suspect]
     Active Substance: PIRFENIDONE
     Indication: INFERTILITY
     Route: 048
     Dates: start: 20170802
  9. FLUTICASONE SPR [Concomitant]
  10. CALCIUM [Concomitant]
     Active Substance: CALCIUM
  11. LEVOTHYROXIN [Concomitant]
     Active Substance: LEVOTHYROXINE

REACTIONS (1)
  - Malaise [None]

NARRATIVE: CASE EVENT DATE: 20190704
